FAERS Safety Report 9630272 (Version 1)
Quarter: 2013Q4

REPORT INFORMATION
  Report Type: Report from Study
  Country: US (occurrence: US)
  Receive Date: 20131017
  Receipt Date: 20131017
  Transmission Date: 20140711
  Serious: Yes (Hospitalization, Other)
  Sender: FDA-Public Use
  Company Number: US-PFIZER INC-2013293519

PATIENT
  Age: 28 Year
  Sex: Female

DRUGS (5)
  1. DILANTIN-125 [Suspect]
     Indication: GRAND MAL CONVULSION
     Dosage: UNK
  2. DILANTIN-125 [Suspect]
     Dosage: 100 MG, 3X/DAY
  3. DILANTIN-125 [Suspect]
     Dosage: 100 MG, 4X/DAY
  4. DILANTIN-125 [Suspect]
     Dosage: 100 MG, 3X/DAY
     Dates: end: 19610703
  5. PHENOBARBITAL [Suspect]
     Indication: GRAND MAL CONVULSION
     Dosage: UNK
     Dates: start: 196106, end: 19610703

REACTIONS (11)
  - Toxicity to various agents [Unknown]
  - Drug intolerance [Unknown]
  - Drug ineffective [Unknown]
  - Psychotic disorder [Unknown]
  - Ataxia [Recovering/Resolving]
  - Nystagmus [Recovering/Resolving]
  - Confusional state [Unknown]
  - Headache [Recovering/Resolving]
  - Urine delta aminolevulinate increased [Unknown]
  - Porphyrins stool increased [Unknown]
  - Amino acid level increased [Unknown]
